FAERS Safety Report 19804769 (Version 3)
Quarter: 2023Q1

REPORT INFORMATION
  Report Type: Report from Study
  Country: DE (occurrence: DE)
  Receive Date: 20210908
  Receipt Date: 20230304
  Transmission Date: 20230418
  Serious: Yes (Hospitalization)
  Sender: FDA-Public Use
  Company Number: DE-ABBVIE-21K-062-4070069-00

PATIENT
  Age: 46 Year
  Sex: Male
  Weight: 79 kg

DRUGS (7)
  1. UPADACITINIB [Suspect]
     Active Substance: UPADACITINIB
     Indication: Rheumatoid arthritis
     Dosage: DRUG END DATE: 2021
     Route: 048
     Dates: start: 20210520
  2. UPADACITINIB [Suspect]
     Active Substance: UPADACITINIB
     Indication: Rheumatoid arthritis
     Dosage: DRUG START DATE: 2021
     Route: 048
     Dates: end: 20211019
  3. PREDNISOLONE [Concomitant]
     Active Substance: PREDNISOLONE
     Indication: Rheumatoid arthritis
     Route: 048
     Dates: start: 20210312
  4. Seasonal Influenza vaccination [Concomitant]
     Indication: Antiviral prophylaxis
     Dates: start: 20201125, end: 20201125
  5. Seasonal Influenza vaccination [Concomitant]
     Indication: Antiviral prophylaxis
     Dates: start: 20211019, end: 20211019
  6. COVID-19 VACCINE [Concomitant]
     Indication: COVID-19 prophylaxis
     Dates: start: 20210426, end: 20210426
  7. COVID-19 VACCINE [Concomitant]
     Indication: COVID-19 prophylaxis
     Dates: start: 20210607, end: 20210607

REACTIONS (3)
  - Intervertebral disc protrusion [Recovered/Resolved]
  - Therapeutic product effect decreased [Unknown]
  - Drug ineffective [Not Recovered/Not Resolved]

NARRATIVE: CASE EVENT DATE: 20210601
